FAERS Safety Report 19605774 (Version 2)
Quarter: 2021Q3

REPORT INFORMATION
  Report Type: Report from Study
  Country: DE (occurrence: DE)
  Receive Date: 20210723
  Receipt Date: 20210805
  Transmission Date: 20211014
  Serious: Yes (Hospitalization)
  Sender: FDA-Public Use
  Company Number: DE-ALXN-A202108187

PATIENT
  Age: 62 Year
  Sex: Female
  Weight: 96 kg

DRUGS (23)
  1. RAVULIZUMAB. [Suspect]
     Active Substance: RAVULIZUMAB
     Dosage: UNK
     Route: 042
     Dates: start: 20210511
  2. ACETYLSALICYLIC ACID [Concomitant]
     Active Substance: ASPIRIN
     Indication: CARDIOVASCULAR EVENT PROPHYLAXIS
     Dosage: 100 MG, QD
     Route: 048
     Dates: start: 2006
  3. BECLOMETASON [Concomitant]
     Active Substance: BECLOMETHASONE DIPROPIONATE
     Indication: ASTHMA
     Dosage: 0.078 MG, PRN
     Route: 055
     Dates: start: 1975
  4. FENISTIL [Concomitant]
     Active Substance: DIMETHINDENE
     Indication: URTICARIA
     Dosage: 4 MG, SINGLE
     Route: 042
     Dates: start: 20210617, end: 20210617
  5. VALSARTAN. [Concomitant]
     Active Substance: VALSARTAN
     Dosage: 40 MG, QD
     Route: 048
     Dates: start: 20210713
  6. SALBUTAMOL [Concomitant]
     Active Substance: ALBUTEROL
     Indication: ASTHMA
     Dosage: 100 ?G, PRN
     Route: 055
     Dates: start: 1975
  7. SIMVASTATIN. [Concomitant]
     Active Substance: SIMVASTATIN
     Indication: HYPERLIPIDAEMIA
     Dosage: 15 MG, QD
     Route: 048
     Dates: start: 2006
  8. CEFUROXIM                          /00454601/ [Concomitant]
     Active Substance: CEFUROXIME
     Indication: UPPER RESPIRATORY TRACT INFECTION
     Dosage: 500 MG, QD
     Route: 048
     Dates: start: 20210617, end: 20210617
  9. RAVULIZUMAB. [Suspect]
     Active Substance: RAVULIZUMAB
     Indication: MYASTHENIA GRAVIS
     Dosage: UNK
     Route: 042
     Dates: start: 20201110
  10. CELLCEPT [Concomitant]
     Active Substance: MYCOPHENOLATE MOFETIL\MYCOPHENOLATE MOFETIL HYDROCHLORIDE
     Indication: MYASTHENIA GRAVIS
     Dosage: 750 MG, BID
     Route: 048
     Dates: start: 20190321
  11. PANTOPRAZOL                        /01263201/ [Concomitant]
     Active Substance: PANTOPRAZOLE
     Indication: GASTROINTESTINAL DISORDER PROPHYLAXIS
     Dosage: 40 MG, QD
     Route: 048
     Dates: start: 2006
  12. ARELIX                             /00630801/ [Concomitant]
     Active Substance: PIRETANIDE
     Indication: HYPERTENSION
     Dosage: 6 MG, BID
     Route: 048
     Dates: start: 2011
  13. ALDACTONE [Concomitant]
     Active Substance: SPIRONOLACTONE
     Indication: HYPERTENSION
     Dosage: 25 MG, QD
     Route: 048
     Dates: start: 2011
  14. CIMETIDIN                          /00397401/ [Concomitant]
     Active Substance: CIMETIDINE
     Indication: URTICARIA
     Dosage: UNK, SINGLE
     Route: 065
     Dates: start: 20210617, end: 20210617
  15. RAVULIZUMAB. [Suspect]
     Active Substance: RAVULIZUMAB
     Indication: MYASTHENIA GRAVIS
     Dosage: UNK
     Route: 042
     Dates: start: 20200707
  16. RAVULIZUMAB. [Suspect]
     Active Substance: RAVULIZUMAB
     Dosage: UNK
     Route: 042
     Dates: start: 20210706
  17. MESTINON [Concomitant]
     Active Substance: PYRIDOSTIGMINE BROMIDE
     Indication: MYASTHENIA GRAVIS
     Dosage: 60 MG, QID
     Route: 048
     Dates: start: 20190919
  18. CHLORMADINON [Concomitant]
     Active Substance: CHLORMADINONE ACETATE
     Indication: MENOPAUSAL SYMPTOMS
     Dosage: 2 MG, QD
     Route: 048
     Dates: start: 202009
  19. MOMETASON [Concomitant]
     Active Substance: MOMETASONE FUROATE
     Indication: OTITIS MEDIA
     Dosage: 50 ?G, PRN
     Route: 045
     Dates: start: 20210112
  20. SALBUTAMOL [Concomitant]
     Active Substance: ALBUTEROL
     Indication: URTICARIA
     Dosage: UNK
     Route: 048
     Dates: start: 20210617
  21. FLUNISOLIDE. [Concomitant]
     Active Substance: FLUNISOLIDE
     Indication: ASTHMA
     Dosage: 0.025 MG, PRN
     Route: 055
     Dates: start: 1975
  22. VALSARTAN. [Concomitant]
     Active Substance: VALSARTAN
     Indication: HYPERTENSION
     Dosage: 80 MG, BID
     Route: 048
     Dates: start: 2006, end: 20210712
  23. CROMOGLICIC ACID;REPROTEROL [Concomitant]
     Active Substance: CROMOLYN SODIUM\REPROTEROL HYDROCHLORIDE
     Indication: ASTHMA
     Dosage: 0.46/0.91 MG, PRN
     Route: 055
     Dates: start: 1975

REACTIONS (1)
  - Intercostal neuralgia [Recovering/Resolving]

NARRATIVE: CASE EVENT DATE: 20210709
